FAERS Safety Report 15932914 (Version 1)
Quarter: 2019Q1

REPORT INFORMATION
  Report Type: Spontaneous
  Country: US (occurrence: US)
  Receive Date: 20190207
  Receipt Date: 20190207
  Transmission Date: 20190417
  Serious: No
  Sender: FDA-Public Use
  Company Number: US-MYLANLABS-2019M1006610

PATIENT

DRUGS (7)
  1. ATENOLOL. [Concomitant]
     Active Substance: ATENOLOL
     Dosage: UNK
  2. NORTRIPTYLINE [Concomitant]
     Active Substance: NORTRIPTYLINE
     Dosage: UNK
  3. METHIMAZOLE. [Concomitant]
     Active Substance: METHIMAZOLE
     Dosage: UNK
  4. TEMAZEPAM CAPSULES USP [Suspect]
     Active Substance: TEMAZEPAM
     Indication: INSOMNIA
     Dosage: 30 MILLIGRAM
     Route: 048
     Dates: start: 20190114, end: 20190117
  5. RANITIDINE. [Concomitant]
     Active Substance: RANITIDINE
     Dosage: UNK
  6. METFORMIN [Concomitant]
     Active Substance: METFORMIN HYDROCHLORIDE
     Dosage: UNK
  7. OMEPRAZOLE. [Concomitant]
     Active Substance: OMEPRAZOLE
     Dosage: UNK

REACTIONS (1)
  - Abnormal dreams [Recovered/Resolved]

NARRATIVE: CASE EVENT DATE: 20190114
